FAERS Safety Report 18064795 (Version 1)
Quarter: 2020Q3

REPORT INFORMATION
  Report Type: Spontaneous
  Country: US (occurrence: US)
  Receive Date: 20200723
  Receipt Date: 20200723
  Transmission Date: 20201103
  Serious: No
  Sender: FDA-Public Use
  Company Number: None

PATIENT
  Age: 70 Year
  Sex: Male
  Weight: 82.8 kg

DRUGS (16)
  1. DEXAMETHASONE. [Concomitant]
     Active Substance: DEXAMETHASONE
  2. ONDANSETRON [Concomitant]
     Active Substance: ONDANSETRON
  3. FENTANYL. [Concomitant]
     Active Substance: FENTANYL
  4. GABAPENTIN. [Concomitant]
     Active Substance: GABAPENTIN
  5. LIDODERM [Concomitant]
     Active Substance: LIDOCAINE
  6. CLOPIDOGREL BISULFATE. [Concomitant]
     Active Substance: CLOPIDOGREL BISULFATE
  7. ROSUVASTATIN. [Concomitant]
     Active Substance: ROSUVASTATIN
  8. ASPIRIN 81 [Concomitant]
     Active Substance: ASPIRIN
  9. VITAMIN D [Concomitant]
     Active Substance: VITAMIN D NOS
  10. NINLARO [Suspect]
     Active Substance: IXAZOMIB CITRATE
     Indication: PLASMA CELL MYELOMA
     Dosage: ?          OTHER FREQUENCY:DAYS 1,8,15;?
     Route: 048
     Dates: start: 20200129, end: 20200723
  11. METOPROLOL TARTRATE. [Concomitant]
     Active Substance: METOPROLOL TARTRATE
  12. PANTOPRAZOLE [Concomitant]
     Active Substance: PANTOPRAZOLE
  13. CYCLOBENZAPRINE. [Concomitant]
     Active Substance: CYCLOBENZAPRINE
  14. ACYCLOVIR. [Concomitant]
     Active Substance: ACYCLOVIR
  15. HYDROMORPHONE [Concomitant]
     Active Substance: HYDROMORPHONE
  16. ZOMETA [Concomitant]
     Active Substance: ZOLEDRONIC ACID

REACTIONS (1)
  - Disease progression [None]

NARRATIVE: CASE EVENT DATE: 20200723
